FAERS Safety Report 20893988 (Version 1)
Quarter: 2022Q2

REPORT INFORMATION
  Report Type: Spontaneous
  Country: SI (occurrence: SI)
  Receive Date: 20220531
  Receipt Date: 20220531
  Transmission Date: 20220721
  Serious: Yes (Other)
  Sender: FDA-Public Use
  Company Number: SI-002147023-NVSC2022SI116517

PATIENT
  Sex: Male

DRUGS (7)
  1. ENTECAVIR [Suspect]
     Active Substance: ENTECAVIR
     Indication: Hepatitis B
     Dosage: UNK
     Route: 065
     Dates: start: 201906
  2. ENTECAVIR [Suspect]
     Active Substance: ENTECAVIR
     Indication: Prophylactic chemotherapy
  3. GLATIRAMER ACETATE [Concomitant]
     Active Substance: GLATIRAMER ACETATE
     Indication: Product used for unknown indication
     Dosage: UNK
     Route: 065
  4. OCRELIZUMAB [Concomitant]
     Active Substance: OCRELIZUMAB
     Indication: Product used for unknown indication
     Dosage: UNK
     Route: 065
     Dates: start: 201907
  5. OCRELIZUMAB [Concomitant]
     Active Substance: OCRELIZUMAB
     Dosage: UNK
     Route: 065
     Dates: start: 201906
  6. ESCITALOPRAM [Concomitant]
     Active Substance: ESCITALOPRAM OXALATE
     Indication: Product used for unknown indication
     Dosage: UNK
     Route: 065
  7. METHYLPREDNISOLONE [Concomitant]
     Active Substance: METHYLPREDNISOLONE
     Indication: Product used for unknown indication
     Dosage: UNK
     Route: 065

REACTIONS (22)
  - Gait disturbance [Not Recovered/Not Resolved]
  - Weight decreased [Unknown]
  - Visual impairment [Not Recovered/Not Resolved]
  - Drug ineffective [Unknown]
  - Fatigue [Unknown]
  - Quadriparesis [Unknown]
  - Anxiety disorder [Unknown]
  - Rash [Unknown]
  - Anger [Not Recovered/Not Resolved]
  - Depressive symptom [Unknown]
  - Nervous system disorder [Unknown]
  - General physical health deterioration [Unknown]
  - Limb injury [Not Recovered/Not Resolved]
  - Somatic symptom disorder [Unknown]
  - Aggression [Not Recovered/Not Resolved]
  - Sleep disorder [Not Recovered/Not Resolved]
  - Fall [Not Recovered/Not Resolved]
  - Central nervous system lesion [Unknown]
  - Angiopathy [Unknown]
  - Urinary incontinence [Unknown]
  - Muscular weakness [Not Recovered/Not Resolved]
  - Demyelination [Unknown]

NARRATIVE: CASE EVENT DATE: 20190101
